FAERS Safety Report 9344149 (Version 1)
Quarter: 2013Q2

REPORT INFORMATION
  Report Type: Spontaneous
  Country: SE (occurrence: SE)
  Receive Date: 20130612
  Receipt Date: 20130612
  Transmission Date: 20140414
  Serious: Yes (Other)
  Sender: FDA-Public Use
  Company Number: SE-PFIZER INC-2013169451

PATIENT
  Age: 38 Year
  Sex: Female

DRUGS (4)
  1. XANOR [Suspect]
     Dosage: 0.5 MG, UNK
  2. XANOR DEPOT [Suspect]
     Dosage: 2 MG, UNK
  3. EFEXOR DEPOT [Suspect]
     Indication: POST-TRAUMATIC STRESS DISORDER
     Dosage: UNK
     Dates: start: 201206
  4. ALPRAZOLAM [Suspect]
     Dosage: 2 MG, UNK

REACTIONS (15)
  - Loss of consciousness [Unknown]
  - Apnoea [Unknown]
  - Drug dependence [Not Recovered/Not Resolved]
  - Pallor [Unknown]
  - Muscle spasms [Unknown]
  - Nausea [Unknown]
  - Chills [Unknown]
  - Skin disorder [Unknown]
  - Apathy [Unknown]
  - Depressed mood [Unknown]
  - Negative thoughts [Unknown]
  - Palpitations [Unknown]
  - Fall [Unknown]
  - Headache [Unknown]
  - Fear [Unknown]
